FAERS Safety Report 10920700 (Version 1)
Quarter: 2015Q1

REPORT INFORMATION
  Report Type: Spontaneous
  Country: US (occurrence: None)
  Receive Date: 20150313
  Receipt Date: 20150313
  Transmission Date: 20150721
  Serious: Yes (Disabling)
  Sender: FDA-Public Use
  Company Number: None

PATIENT
  Age: 56 Year
  Sex: Female
  Weight: 68.04 kg

DRUGS (13)
  1. NASAL SPRAY 50 MCG. [Concomitant]
  2. ZYRTEC 10 MG [Concomitant]
  3. LOSARTAN 25 MG WATSON PHARMACEUTICALS [Concomitant]
     Active Substance: LOSARTAN
  4. SINGULAIR [Concomitant]
     Active Substance: MONTELUKAST SODIUM
  5. CENTURY MATURE MULTIVITAMIN [Concomitant]
  6. ZICAM NOS [Suspect]
     Active Substance: ACETAMINOPHEN\CHLORPHENIRAMINE MALEATE\DEXTROMETHORPHAN HYDROBROMIDE\PHENYLEPHRINE HYDROCHLORIDE OR ACETAMINOPHEN\DEXTROMETHORPHAN HYDROBROMIDE\DOXYLAMINE SUCCINATE\PHENYLEPHRINE HYDROCHLORIDE
     Indication: NASOPHARYNGITIS
     Dosage: 1 TABLET EVERY 4-6 HOURS ?ONLY USED ONE TABLET ON 3/9/15.
     Route: 048
  7. LEVOTHYROXINE 100 MCG [Concomitant]
     Active Substance: LEVOTHYROXINE
  8. MELATONIN 3MG [Concomitant]
  9. B12 1000 MCG [Concomitant]
  10. D3 1,000 IU [Concomitant]
  11. FLUTICASONE [Concomitant]
     Active Substance: FLUTICASONE\FLUTICASONE PROPIONATE
  12. PROBIOTIC COLON SUPPORT [Concomitant]
  13. FISH OIL 1000 MG [Concomitant]

REACTIONS (2)
  - Anosmia [None]
  - Ageusia [None]

NARRATIVE: CASE EVENT DATE: 20150309
